FAERS Safety Report 6795522-2 (Version None)
Quarter: 2010Q2

REPORT INFORMATION
  Report Type: 
  Country: None (occurrence: None)
  Receive Date: 20100520
  Receipt Date: 20090908
  Transmission Date: 20101027
  Serious: Yes (Disabling, Other)
  Sender: FDA-Public Use
  Company Number: 2009232723

PATIENT
  Age: 49 Year
  Sex: Female
  Weight: 118 kg

DRUGS (5)
  1. PROVERA [Suspect]
     Indication: HORMONE REPLACEMENT THERAPY
     Dosage: ORAL
     Route: 048
  2. PREMARIN [Suspect]
     Indication: HORMONE REPLACEMENT THERAPY
     Dates: start: 19980101
  3. ESTRACE [Suspect]
     Indication: HORMONE REPLACEMENT THERAPY
  4. ORTHO NOVUM 0.5/50 21 TAB [Suspect]
     Indication: HORMONE REPLACEMENT THERAPY
     Dates: start: 19730101, end: 19830101
  5. DYAZIDE [Concomitant]

REACTIONS (1)
  - BREAST CANCER [None]
